FAERS Safety Report 8366561-5 (Version None)
Quarter: 2012Q2

REPORT INFORMATION
  Report Type: 
  Country: None (occurrence: None)
  Receive Date: 20120517
  Receipt Date: 20120508
  Transmission Date: 20120825
  Serious: Yes (Other)
  Sender: FDA-Public Use
  Company Number: BR-ASTRAZENECA-2012SE30183

PATIENT
  Sex: Male

DRUGS (5)
  1. AMIODARONE HCL [Concomitant]
  2. LIPITOR [Concomitant]
  3. DIOVAN [Concomitant]
  4. BRILINTA [Suspect]
     Indication: CARDIOVASCULAR EVENT PROPHYLAXIS
     Route: 048
     Dates: start: 20111201
  5. SOMALGIN [Concomitant]

REACTIONS (2)
  - OFF LABEL USE [None]
  - VENOUS OCCLUSION [None]
